FAERS Safety Report 21016017 (Version 3)
Quarter: 2022Q3

REPORT INFORMATION
  Report Type: Other
  Country: US (occurrence: None)
  Receive Date: 20220628
  Receipt Date: 20220816
  Transmission Date: 20221027
  Serious: Yes (Other)
  Sender: FDA-Public Use
  Company Number: US-ROCHE-3125968

PATIENT
  Age: 66 Year
  Sex: Male
  Weight: 72.640 kg

DRUGS (6)
  1. OCREVUS [Suspect]
     Active Substance: OCRELIZUMAB
     Indication: Relapsing-remitting multiple sclerosis
     Dosage: HER LAST INFUSION MARCH 2021
     Route: 042
  2. OCREVUS [Suspect]
     Active Substance: OCRELIZUMAB
     Indication: Primary progressive multiple sclerosis
  3. VALIUM [Suspect]
     Active Substance: DIAZEPAM
     Indication: Sleep disorder
     Route: 065
  4. ELIQUIS [Concomitant]
     Active Substance: APIXABAN
     Indication: Anticoagulant therapy
  5. BACLOFEN [Concomitant]
     Active Substance: BACLOFEN
  6. MODERNA COVID-19 VACCINE [Concomitant]
     Active Substance: ELASOMERAN
     Dates: start: 202102

REACTIONS (7)
  - Multiple sclerosis [Unknown]
  - Deep vein thrombosis [Unknown]
  - COVID-19 [Unknown]
  - Vaccination failure [Unknown]
  - SARS-CoV-2 antibody test negative [Unknown]
  - Pain in extremity [Unknown]
  - Off label use [Unknown]

NARRATIVE: CASE EVENT DATE: 20201101
